FAERS Safety Report 7584206-9 (Version None)
Quarter: 2011Q2

REPORT INFORMATION
  Report Type: 
  Country: None (occurrence: None)
  Receive Date: 20110630
  Receipt Date: 20100805
  Transmission Date: 20111010
  Serious: No
  Sender: FDA-Public Use
  Company Number: US-ABBOTT-10P-163-0661846-00

PATIENT
  Age: 31 Year
  Sex: Female

DRUGS (4)
  1. NORVIR [Suspect]
     Indication: PRODUCT USED FOR UNKNOWN INDICATION
     Dosage: 100 MG DAILY
     Route: 048
     Dates: start: 20100302
  2. DARUNAVIR ETHANOLATE [Suspect]
     Indication: PRODUCT USED FOR UNKNOWN INDICATION
     Dosage: 600 MG DAILY
     Route: 048
     Dates: start: 20100302
  3. TRUVADA [Suspect]
     Indication: PRODUCT USED FOR UNKNOWN INDICATION
     Dosage: 1  DAILY
     Route: 048
     Dates: start: 20091207
  4. KALETRA [Suspect]
     Indication: PRODUCT USED FOR UNKNOWN INDICATION
     Dosage: 6 DAILY
     Route: 048
     Dates: start: 20091207, end: 20100302

REACTIONS (2)
  - NAUSEA [None]
  - VOMITING [None]
